FAERS Safety Report 10699907 (Version 3)
Quarter: 2015Q1

REPORT INFORMATION
  Report Type: Spontaneous
  Country: JP (occurrence: JP)
  Receive Date: 20150109
  Receipt Date: 20150305
  Transmission Date: 20150721
  Serious: Yes (Death, Hospitalization)
  Sender: FDA-Public Use
  Company Number: JP-BRISTOL-MYERS SQUIBB COMPANY-21401195

PATIENT
  Age: 81 Year
  Sex: Male

DRUGS (1)
  1. ERBITUX [Suspect]
     Active Substance: CETUXIMAB
     Indication: HYPOPHARYNGEAL CANCER
     Dosage: 250 MG/M2, UNK
     Route: 041
     Dates: start: 20140701, end: 20140812

REACTIONS (5)
  - Interstitial lung disease [Fatal]
  - Gastric ulcer [Unknown]
  - Radiation mucositis [Recovered/Resolved]
  - Staphylococcal sepsis [Fatal]
  - Radiation skin injury [Recovered/Resolved]

NARRATIVE: CASE EVENT DATE: 20140802
